FAERS Safety Report 18172734 (Version 5)
Quarter: 2020Q3

REPORT INFORMATION
  Report Type: Report from Study
  Country: CA (occurrence: CA)
  Receive Date: 20200820
  Receipt Date: 20200923
  Transmission Date: 20201103
  Serious: Yes (Hospitalization, Other)
  Sender: FDA-Public Use
  Company Number: CA-BIOGEN-2020BI00895959

PATIENT
  Age: 54 Year
  Sex: Female

DRUGS (4)
  1. TYSABRI [Suspect]
     Active Substance: NATALIZUMAB
     Indication: MULTIPLE SCLEROSIS
     Dosage: DURATION OF DRUG ADMINISTRATION : 1 HOURS
     Route: 042
     Dates: start: 20081218
  2. FAMPYRA [Suspect]
     Active Substance: DALFAMPRIDINE
     Indication: GAIT DISTURBANCE
     Route: 048
     Dates: start: 20180603
  3. LOVENOX [Concomitant]
     Active Substance: ENOXAPARIN SODIUM
     Indication: PRODUCT USED FOR UNKNOWN INDICATION
     Route: 065
  4. TYSABRI [Suspect]
     Active Substance: NATALIZUMAB
     Dosage: DURATION OF DRUG ADMINISTRATION : 1 HOURS
     Route: 042

REACTIONS (11)
  - Gait disturbance [Unknown]
  - Skin necrosis [Unknown]
  - Fall [Recovered/Resolved]
  - Wound infection [Recovered/Resolved]
  - Contusion [Unknown]
  - Off label use [Unknown]
  - Inappropriate schedule of product administration [Unknown]
  - Expanded disability status scale score increased [Unknown]
  - Secondary progressive multiple sclerosis [Unknown]
  - Syncope [Unknown]
  - Burns second degree [Unknown]

NARRATIVE: CASE EVENT DATE: 20200628
